FAERS Safety Report 8131943-3 (Version None)
Quarter: 2012Q1

REPORT INFORMATION
  Report Type: 
  Country: None (occurrence: None)
  Receive Date: 20120213
  Receipt Date: 20120203
  Transmission Date: 20120608
  Serious: Yes (Other)
  Sender: FDA-Public Use
  Company Number: US-CELGENEUS-163-21880-12020613

PATIENT
  Sex: Female

DRUGS (9)
  1. REVLIMID [Suspect]
     Dosage: 15 MILLIGRAM
     Route: 048
     Dates: start: 20120120
  2. ALLOPURINOL [Concomitant]
     Route: 065
  3. CARDIZEM [Concomitant]
     Route: 065
  4. ASPIR-81 [Concomitant]
     Dosage: 81 MILLIGRAM
     Route: 065
  5. METOPROLOL SUCCINATE [Concomitant]
     Route: 065
  6. MAGNESIUM [Concomitant]
     Route: 065
  7. ENALAPRIL MALEATE [Concomitant]
     Route: 065
  8. WARFARIN SODIUM [Concomitant]
     Route: 065
  9. COLACE [Concomitant]
     Route: 065

REACTIONS (4)
  - PAIN [None]
  - MUSCULOSKELETAL DISORDER [None]
  - NAUSEA [None]
  - DIARRHOEA [None]
